FAERS Safety Report 22097817 (Version 1)
Quarter: 2023Q1

REPORT INFORMATION
  Report Type: Spontaneous
  Country: BE (occurrence: BE)
  Receive Date: 20230315
  Receipt Date: 20230315
  Transmission Date: 20230418
  Serious: Yes (Hospitalization, Other)
  Sender: FDA-Public Use
  Company Number: BE-Accord-303885

PATIENT
  Sex: Female

DRUGS (1)
  1. OLMESARTAN [Suspect]
     Active Substance: OLMESARTAN
     Indication: Hypertension
     Dates: start: 201703

REACTIONS (8)
  - Diarrhoea [Unknown]
  - Acute kidney injury [Unknown]
  - Hypokalaemia [Unknown]
  - Stupor [Unknown]
  - Torsade de pointes [Unknown]
  - Decreased appetite [Unknown]
  - Weight decreased [Unknown]
  - Colitis microscopic [Unknown]

NARRATIVE: CASE EVENT DATE: 20170101
